FAERS Safety Report 9055141 (Version 1)
Quarter: 2013Q1

REPORT INFORMATION
  Report Type: Spontaneous
  Country: US (occurrence: US)
  Receive Date: 20130206
  Receipt Date: 20130206
  Transmission Date: 20140127
  Serious: Yes (Hospitalization, Other)
  Sender: FDA-Public Use
  Company Number: US-COVIDIEN/TYCO HEALTHCARE/MALLINCKRODT-T201204567

PATIENT
  Age: 65 None
  Sex: Female

DRUGS (1)
  1. GABLOFEN [Suspect]
     Indication: MUSCLE SPASTICITY
     Dosage: 620 MCG/DAY
     Route: 037

REACTIONS (7)
  - Unresponsive to stimuli [Unknown]
  - Sepsis [Unknown]
  - Respiratory failure [Unknown]
  - Convulsion [Unknown]
  - Hypotension [Unknown]
  - Hypothermia [Unknown]
  - Hypotonia [Unknown]
